FAERS Safety Report 7222135-0 (Version None)
Quarter: 2011Q1

REPORT INFORMATION
  Report Type: 
  Country: None (occurrence: None)
  Receive Date: 20110103
  Receipt Date: 20101217
  Transmission Date: 20110831
  Serious: Yes (Hospitalization)
  Sender: FDA-Public Use
  Company Number: 024548

PATIENT
  Sex: Female

DRUGS (8)
  1. FOLIC ACID [Concomitant]
  2. BUFEXAMAC [Concomitant]
  3. FELBINAC [Concomitant]
  4. HYALURONATE SODIUM [Concomitant]
  5. ALENDRONATE SODIUM [Concomitant]
  6. ALFACALCIDOL [Concomitant]
  7. METHOTREXATE [Concomitant]
  8. CERTOLIZUMAB PEGOL (CERTOLIZUMAB PEGOL) [Suspect]
     Indication: RHEUMATOID ARTHRITIS
     Dosage: (SUBCUTANEOUS)
     Route: 058
     Dates: start: 20090825

REACTIONS (1)
  - GASTROENTERITIS [None]
